FAERS Safety Report 17874481 (Version 3)
Quarter: 2020Q3

REPORT INFORMATION
  Report Type: Spontaneous
  Country: DK (occurrence: DK)
  Receive Date: 20200609
  Receipt Date: 20200911
  Transmission Date: 20201103
  Serious: Yes (Other)
  Sender: FDA-Public Use
  Company Number: DK-009507513-2006DNK001470

PATIENT
  Age: 68 Year
  Sex: Female
  Weight: 88 kg

DRUGS (5)
  1. ATORVASTATIN [Suspect]
     Active Substance: ATORVASTATIN
     Indication: HYPERCHOLESTEROLAEMIA
     Dosage: STRENGTH: 10 MG, DOSE: VARYING
     Route: 048
     Dates: start: 20120619, end: 201909
  2. CHOLESTYRAMINE RESIN [Suspect]
     Active Substance: CHOLESTYRAMINE
     Indication: HYPERCHOLESTEROLAEMIA
     Dosage: STRENGTH: 4 MG
     Route: 048
     Dates: start: 20191111
  3. EZETIMIBE. [Suspect]
     Active Substance: EZETIMIBE
     Indication: HYPERCHOLESTEROLAEMIA
     Dosage: STRENGTH: 10 MG
     Route: 048
     Dates: start: 20190924
  4. ROSUVASTATIN CALCIUM. [Suspect]
     Active Substance: ROSUVASTATIN CALCIUM
     Indication: HYPERCHOLESTEROLAEMIA
     Dosage: STRENGTH: 5 MG
     Route: 048
     Dates: start: 20190403, end: 201908
  5. MAREVAN [Concomitant]
     Active Substance: WARFARIN SODIUM
     Indication: ANTICOAGULANT THERAPY
     Dosage: STRENGTH: 2.5 MG, DOSE: UNKNOWN
     Route: 048
     Dates: start: 20140127

REACTIONS (1)
  - Hallucination, auditory [Recovering/Resolving]

NARRATIVE: CASE EVENT DATE: 20190401
